FAERS Safety Report 17395373 (Version 1)
Quarter: 2020Q1

REPORT INFORMATION
  Report Type: Spontaneous
  Country: FR (occurrence: FR)
  Receive Date: 20200210
  Receipt Date: 20200210
  Transmission Date: 20200409
  Serious: Yes (Hospitalization, Other)
  Sender: FDA-Public Use
  Company Number: FR-GLAXOSMITHKLINE-FR2020GSK021903

PATIENT
  Age: 68 Year
  Sex: Female
  Weight: 83 kg

DRUGS (30)
  1. ACITRETIN. [Suspect]
     Active Substance: ACITRETIN
     Dosage: UNK
     Route: 048
     Dates: start: 2009, end: 2009
  2. STELARA [Suspect]
     Active Substance: USTEKINUMAB
     Dosage: 90 MG (90 MG,8 WK)
     Dates: start: 20180126, end: 201802
  3. HUMIRA [Suspect]
     Active Substance: ADALIMUMAB
     Dosage: 40 MG (40 MG,2 WK)
     Route: 058
     Dates: start: 20170303, end: 20170602
  4. STRESAM [Concomitant]
     Active Substance: ETIFOXINE
     Indication: PRODUCT USED FOR UNKNOWN INDICATION
     Dosage: UNK
     Route: 065
     Dates: start: 20180123
  5. REMICADE [Suspect]
     Active Substance: INFLIXIMAB
     Dosage: 420 MG (420 MG,7 WK)
     Route: 042
     Dates: start: 20151126
  6. COSENTYX [Suspect]
     Active Substance: SECUKINUMAB
     Indication: PRODUCT USED FOR UNKNOWN INDICATION
     Dosage: 300 MG (300 MG,1 WK)
     Route: 058
     Dates: start: 20160830, end: 20161007
  7. HUMIRA [Suspect]
     Active Substance: ADALIMUMAB
     Indication: PRODUCT USED FOR UNKNOWN INDICATION
     Dosage: 80 MG, WE
     Route: 058
     Dates: start: 20170224, end: 20170303
  8. NOROXINE [Concomitant]
     Active Substance: NORFLOXACIN
     Indication: PRODUCT USED FOR UNKNOWN INDICATION
     Dosage: UNK
     Route: 065
     Dates: start: 20160114
  9. FLECAINE [Concomitant]
     Active Substance: FLECAINIDE
     Indication: PRODUCT USED FOR UNKNOWN INDICATION
     Dosage: UNK
     Route: 065
     Dates: start: 20170728
  10. ACITRETIN. [Suspect]
     Active Substance: ACITRETIN
     Indication: PRODUCT USED FOR UNKNOWN INDICATION
     Dosage: 20 MG, QD
     Route: 048
     Dates: start: 20180126, end: 20180323
  11. ACITRETIN. [Suspect]
     Active Substance: ACITRETIN
     Dosage: 25 MG, QD
     Route: 048
     Dates: start: 20160704, end: 20160809
  12. COSENTYX [Suspect]
     Active Substance: SECUKINUMAB
     Dosage: 300 MG (300 MG,4 WK)
     Route: 058
     Dates: start: 20161007, end: 201701
  13. KARDEGIC [Concomitant]
     Active Substance: ASPIRIN DL-LYSINE
     Indication: PRODUCT USED FOR UNKNOWN INDICATION
     Dosage: UNK
     Route: 065
     Dates: start: 20130620
  14. REMICADE [Suspect]
     Active Substance: INFLIXIMAB
     Dosage: 415 MG (415 MG,8 WK)
     Route: 042
     Dates: start: 20160202, end: 20160325
  15. HUMIRA [Suspect]
     Active Substance: ADALIMUMAB
     Dosage: 40 MG, WE
     Route: 058
     Dates: start: 20170602, end: 20170728
  16. DERMOVAL [Concomitant]
     Dosage: UNK
     Route: 065
     Dates: start: 20180717
  17. BETNEVAL [Concomitant]
     Active Substance: BETAMETHASONE VALERATE
     Indication: PRODUCT USED FOR UNKNOWN INDICATION
     Dosage: UNK
     Route: 065
     Dates: start: 20150408
  18. CERAT INALTERABLE [Concomitant]
     Indication: PRODUCT USED FOR UNKNOWN INDICATION
     Dosage: UNK
     Route: 065
     Dates: start: 20180717
  19. CICLOSPORINE [Suspect]
     Active Substance: CYCLOSPORINE
     Indication: PRODUCT USED FOR UNKNOWN INDICATION
     Dosage: 15 MG, WE
     Route: 058
     Dates: start: 20180323
  20. DAIVOBET [Concomitant]
     Active Substance: BETAMETHASONE DIPROPIONATE\CALCIPOTRIENE
     Indication: PRODUCT USED FOR UNKNOWN INDICATION
     Dosage: UNK
     Route: 065
     Dates: start: 20151126
  21. ACITRETIN. [Suspect]
     Active Substance: ACITRETIN
     Dosage: 10 MG, QD
     Route: 065
     Dates: start: 20170728, end: 20180126
  22. STELARA [Suspect]
     Active Substance: USTEKINUMAB
     Indication: PRODUCT USED FOR UNKNOWN INDICATION
     Dosage: 90 MG (90 MG,10 WK)
     Route: 058
     Dates: start: 20171027, end: 20180126
  23. STELARA [Suspect]
     Active Substance: USTEKINUMAB
     Dosage: 90 MG (90 MG,12 WK)
     Route: 058
     Dates: start: 20170828, end: 20171027
  24. REMICADE [Suspect]
     Active Substance: INFLIXIMAB
     Indication: PSORIASIS
     Dosage: 400 MG (400 MG,8 WK)
     Route: 042
     Dates: start: 20160704, end: 20160704
  25. NERISONE [Concomitant]
     Active Substance: DIFLUCORTOLONE VALERATE
     Indication: PRODUCT USED FOR UNKNOWN INDICATION
     Dosage: UNK
     Route: 065
     Dates: start: 20180323, end: 20180423
  26. STELARA [Suspect]
     Active Substance: USTEKINUMAB
     Dosage: 90 MG (90 MG,8 WK)
     Route: 058
     Dates: start: 20170728, end: 20170828
  27. REMICADE [Suspect]
     Active Substance: INFLIXIMAB
     Dosage: 420 MG (420 MG,8 WK)
     Route: 042
     Dates: start: 20150529, end: 20151126
  28. GLYCEROTONE [Concomitant]
     Indication: PRODUCT USED FOR UNKNOWN INDICATION
     Dosage: UNK
     Route: 065
     Dates: start: 20180323
  29. DERMOVAL [Concomitant]
     Indication: PRODUCT USED FOR UNKNOWN INDICATION
     Dosage: UNK
     Route: 065
     Dates: start: 20150408
  30. LOCAPRED [Concomitant]
     Active Substance: DESONIDE
     Indication: PRODUCT USED FOR UNKNOWN INDICATION
     Dosage: UNK
     Route: 065
     Dates: start: 20180323

REACTIONS (7)
  - Haemorrhoids [Recovered/Resolved]
  - Urinary tract infection [Recovered/Resolved]
  - Drug ineffective [Unknown]
  - Psoriasis [Not Recovered/Not Resolved]
  - Off label use [Unknown]
  - Cutaneous T-cell lymphoma [Not Recovered/Not Resolved]
  - Product use issue [Unknown]

NARRATIVE: CASE EVENT DATE: 20150529
